FAERS Safety Report 19069570 (Version 1)
Quarter: 2021Q1

REPORT INFORMATION
  Report Type: Spontaneous
  Country: US (occurrence: US)
  Receive Date: 20210329
  Receipt Date: 20210329
  Transmission Date: 20210420
  Serious: No
  Sender: FDA-Public Use
  Company Number: None

PATIENT
  Age: 44 Year
  Sex: Male
  Weight: 123.75 kg

DRUGS (1)
  1. HYDROCODONE/ACETAMINOPHEN 10MG?325MG [Suspect]
     Active Substance: ACETAMINOPHEN\HYDROCODONE BITARTRATE
     Indication: TENDON RUPTURE
     Dosage: ?          QUANTITY:1 TABLET(S);?
     Route: 048
     Dates: start: 20210320

REACTIONS (3)
  - Product substitution issue [None]
  - Withdrawal syndrome [None]
  - Drug ineffective [None]

NARRATIVE: CASE EVENT DATE: 20210320
